FAERS Safety Report 22203965 (Version 1)
Quarter: 2023Q2

REPORT INFORMATION
  Report Type: Spontaneous
  Country: NL (occurrence: NL)
  Receive Date: 20230412
  Receipt Date: 20230412
  Transmission Date: 20230722
  Serious: No
  Sender: FDA-Public Use
  Company Number: None

PATIENT
  Sex: Male
  Weight: 70 kg

DRUGS (3)
  1. PAXLOVID [Interacting]
     Active Substance: NIRMATRELVIR\RITONAVIR
     Indication: COVID-19
     Dosage: ^1 PER DAY^
     Dates: start: 20230310
  2. RINVOQ [Interacting]
     Active Substance: UPADACITINIB
     Indication: Crohn^s disease
     Dosage: 15 MG, 1X/DAY
     Dates: start: 20230201
  3. URSODIOL [Concomitant]
     Active Substance: URSODIOL
     Dosage: TABLET, 300 MG

REACTIONS (3)
  - Acne [Not Recovered/Not Resolved]
  - Drug interaction [Unknown]
  - Labelled drug-drug interaction medication error [Unknown]
